FAERS Safety Report 6105507-7 (Version None)
Quarter: 2009Q1

REPORT INFORMATION
  Report Type: 
  Country: None (occurrence: None)
  Receive Date: 20090306
  Receipt Date: 20090227
  Transmission Date: 20090719
  Serious: Yes (Hospitalization)
  Sender: FDA-Public Use
  Company Number: A0771657A

PATIENT
  Age: 54 Year
  Sex: Female
  Weight: 93.2 kg

DRUGS (6)
  1. AVANDIA [Suspect]
     Indication: DIABETES MELLITUS
     Dosage: 8MG PER DAY
     Route: 048
     Dates: start: 20020225, end: 20050101
  2. ZOCOR [Concomitant]
  3. LIPITOR [Concomitant]
  4. CRESTOR [Concomitant]
  5. TOPROL-XL [Concomitant]
  6. CENTRUM [Concomitant]

REACTIONS (2)
  - CARDIAC FAILURE CONGESTIVE [None]
  - MYOCARDIAL INFARCTION [None]
